FAERS Safety Report 5508245-4 (Version None)
Quarter: 2007Q4

REPORT INFORMATION
  Report Type: 
  Country: None (occurrence: None)
  Receive Date: 20071106
  Receipt Date: 20070609
  Transmission Date: 20080405
  Serious: No
  Sender: FDA-Public Use
  Company Number: A0654730A

PATIENT
  Sex: Female

DRUGS (2)
  1. AMOXIL [Suspect]
     Dosage: 875MG TWICE PER DAY
     Route: 048
     Dates: start: 20070530, end: 20070607
  2. AMOXICILLIN [Suspect]
     Dosage: 875MG TWICE PER DAY
     Route: 048
     Dates: start: 20070529, end: 20070530

REACTIONS (2)
  - PRURITUS [None]
  - RASH [None]
